FAERS Safety Report 14950565 (Version 4)
Quarter: 2018Q3

REPORT INFORMATION
  Report Type: Spontaneous
  Country: FR (occurrence: FR)
  Receive Date: 20180530
  Receipt Date: 20180806
  Transmission Date: 20181010
  Serious: Yes (Other)
  Sender: FDA-Public Use
  Company Number: FR-TEVA-2018-FR-899172

PATIENT
  Age: 46 Year
  Sex: Female

DRUGS (3)
  1. OMEPRAZOLE. [Suspect]
     Active Substance: OMEPRAZOLE
     Route: 048
  2. CHEMOTHERAPY [Concomitant]
     Active Substance: UNSPECIFIED INGREDIENT
     Dates: start: 20170801, end: 20171101
  3. LYNPARZA [Interacting]
     Active Substance: OLAPARIB
     Indication: OVARIAN CANCER
     Dosage: 800 MILLIGRAM DAILY;
     Route: 048
     Dates: start: 20171227

REACTIONS (9)
  - Pruritus generalised [Recovering/Resolving]
  - Fatigue [Not Recovered/Not Resolved]
  - Oedema [Recovered/Resolved]
  - Restless legs syndrome [Not Recovered/Not Resolved]
  - Thrombocytopenia [Not Recovered/Not Resolved]
  - Throat irritation [Not Recovered/Not Resolved]
  - Urticaria [Recovering/Resolving]
  - Drug interaction [Not Recovered/Not Resolved]
  - Implant site reaction [Not Recovered/Not Resolved]

NARRATIVE: CASE EVENT DATE: 20171228
